FAERS Safety Report 20126764 (Version 5)
Quarter: 2022Q1

REPORT INFORMATION
  Report Type: Report from Study
  Country: FR (occurrence: FR)
  Receive Date: 20211129
  Receipt Date: 20220301
  Transmission Date: 20220423
  Serious: Yes (Hospitalization)
  Sender: FDA-Public Use
  Company Number: FR-GLAXOSMITHKLINE-FR2021GSK240766

PATIENT
  Age: 62 Year
  Sex: Female
  Weight: 52 kg

DRUGS (10)
  1. NIRAPARIB [Suspect]
     Active Substance: NIRAPARIB
     Indication: Ovarian cancer
     Dosage: 200 MG, BID
     Dates: start: 20210127
  2. NIRAPARIB [Suspect]
     Active Substance: NIRAPARIB
     Dosage: 100 MG
     Dates: start: 20211117, end: 20211117
  3. CARBOPLATIN [Suspect]
     Active Substance: CARBOPLATIN
     Indication: Ovarian cancer
     Dosage: 5 AUC
     Route: 042
     Dates: start: 20200723, end: 20200723
  4. CARBOPLATIN [Suspect]
     Active Substance: CARBOPLATIN
     Dosage: 5 AUC
     Route: 042
     Dates: start: 20201105, end: 20201105
  5. PACLITAXEL [Suspect]
     Active Substance: PACLITAXEL
     Indication: Ovarian cancer
     Dosage: 267 MG
     Route: 042
     Dates: start: 20200723, end: 20200723
  6. PACLITAXEL [Suspect]
     Active Substance: PACLITAXEL
     Dosage: 206 MG
     Route: 042
     Dates: start: 20201015, end: 20201015
  7. BEVACIZUMAB [Suspect]
     Active Substance: BEVACIZUMAB
     Indication: Ovarian cancer
     Dosage: UNK
     Route: 042
  8. BEVACIZUMAB [Suspect]
     Active Substance: BEVACIZUMAB
     Dosage: 810 MG/KG
     Route: 042
     Dates: start: 20211027, end: 20211027
  9. CISPLATIN [Concomitant]
     Active Substance: CISPLATIN
     Dosage: UNK
  10. DOCETAXEL [Concomitant]
     Active Substance: DOCETAXEL

REACTIONS (1)
  - Pneumonitis [Not Recovered/Not Resolved]

NARRATIVE: CASE EVENT DATE: 20211119
